FAERS Safety Report 5418170-5 (Version None)
Quarter: 2007Q3

REPORT INFORMATION
  Report Type: 
  Country: None (occurrence: None)
  Receive Date: 20070817
  Receipt Date: 20070806
  Transmission Date: 20080115
  Serious: Yes (Death)
  Sender: FDA-Public Use
  Company Number: US-TYCO HEALTHCARE/MALLINCKRODT-T200700901

PATIENT

DRUGS (10)
  1. ACETAMINOPHEN AND OXYCODONE HCL [Suspect]
     Indication: POSTOPERATIVE ANALGESIA
     Dosage: ONE TO TWO TABLETS EVERY 3 TO 4 HOURS
     Route: 048
     Dates: start: 20070501, end: 20070501
  2. VISTARIL                           /00058402/ [Concomitant]
     Dosage: 25 MG, QD
     Route: 048
     Dates: start: 20070501
  3. KLONOPIN [Concomitant]
     Dosage: 1 MG, QD
     Route: 048
     Dates: start: 20070426
  4. NORCO [Concomitant]
     Dosage: 10 MG, QD
     Route: 048
     Dates: start: 20070321
  5. ALLEGRA [Concomitant]
     Dosage: 180 MG, QD
     Route: 048
     Dates: start: 20070402
  6. ERYTHROMYCIN [Concomitant]
     Dosage: 250 MG, QD
     Route: 048
     Dates: start: 20070409
  7. PRILOSEC                           /00661201/ [Concomitant]
     Dosage: 20 MG, QD
     Route: 048
     Dates: start: 20070326
  8. CHOLESTYRAMINE [Concomitant]
     Dosage: UNK, QD
     Route: 048
     Dates: start: 20070314
  9. TIMOPTIC [Concomitant]
     Dosage: UNK, QD
     Route: 047
     Dates: start: 20070305
  10. TRAZODONE HCL [Concomitant]
     Dosage: 50 MG, QD
     Route: 048
     Dates: start: 20070305

REACTIONS (3)
  - CARDIAC ARREST [None]
  - DRUG INEFFECTIVE [None]
  - DRUG SCREEN NEGATIVE [None]
